FAERS Safety Report 6485641-2 (Version None)
Quarter: 2009Q4

REPORT INFORMATION
  Report Type: 
  Country: None (occurrence: None)
  Receive Date: 20091209
  Receipt Date: 20090706
  Transmission Date: 20100525
  Serious: No
  Sender: FDA-Public Use
  Company Number: US-AMGEN-KDL354514

PATIENT
  Sex: Female

DRUGS (1)
  1. ENBREL [Suspect]
     Indication: PSORIASIS
     Dates: start: 20070330

REACTIONS (2)
  - DRY EYE [None]
  - EYE PAIN [None]
